FAERS Safety Report 8301578-8 (Version None)
Quarter: 2012Q2

REPORT INFORMATION
  Report Type: 
  Country: None (occurrence: None)
  Receive Date: 20120420
  Receipt Date: 20120413
  Transmission Date: 20120825
  Serious: Yes (Other)
  Sender: FDA-Public Use
  Company Number: JP-JNJFOC-20120405539

PATIENT
  Age: 88 Year
  Sex: Female

DRUGS (5)
  1. RISPERDAL [Suspect]
     Indication: HALLUCINATION
     Route: 048
     Dates: start: 20120101
  2. LAMISIL [Interacting]
     Indication: ONYCHOMYCOSIS
     Route: 065
     Dates: start: 20120201
  3. RISPERDAL [Suspect]
     Route: 048
     Dates: start: 20120101
  4. RISPERDAL [Suspect]
     Route: 048
     Dates: start: 20120406
  5. RISPERDAL [Suspect]
     Indication: AGGRESSION
     Route: 048
     Dates: start: 20120406

REACTIONS (4)
  - DIZZINESS [None]
  - ONYCHOMYCOSIS [None]
  - DRUG INTERACTION [None]
  - DEPRESSION [None]
